FAERS Safety Report 12468634 (Version 3)
Quarter: 2016Q3

REPORT INFORMATION
  Report Type: Report from Study
  Country: US (occurrence: US)
  Receive Date: 20160615
  Receipt Date: 20160815
  Transmission Date: 20161109
  Serious: Yes (Hospitalization)
  Sender: FDA-Public Use
  Company Number: US-EISAI MEDICAL RESEARCH-EC-2016-013733

PATIENT
  Age: 57 Year
  Sex: Male
  Weight: 98 kg

DRUGS (20)
  1. LISINOPRIL. [Concomitant]
     Active Substance: LISINOPRIL
  2. ATORVASTATIN [Concomitant]
     Active Substance: ATORVASTATIN
  3. LENVIMA [Suspect]
     Active Substance: LENVATINIB
     Dosage: LENVIMA RESTARTED AFTER MISSING ONE DOSE
     Route: 048
     Dates: start: 201606, end: 201607
  4. GREEN TEA EXTRACT [Concomitant]
  5. LENVIMA [Suspect]
     Active Substance: LENVATINIB
     Dosage: LENVIMA RESTARTED AFTER 10 DAYS
     Route: 048
     Dates: start: 20160711, end: 2016
  6. BENEFIBER [Concomitant]
     Active Substance: STARCH, WHEAT
  7. LORAZEPAM. [Concomitant]
     Active Substance: LORAZEPAM
  8. SYNTHROID [Concomitant]
     Active Substance: LEVOTHYROXINE SODIUM
  9. ONDANSETRON [Concomitant]
     Active Substance: ONDANSETRON
  10. CLONAZEPAM. [Concomitant]
     Active Substance: CLONAZEPAM
  11. OXYCODONE HYDROCHLORIDE. [Concomitant]
     Active Substance: OXYCODONE HYDROCHLORIDE
  12. COLACE [Concomitant]
     Active Substance: DOCUSATE SODIUM
  13. PROTONIX [Concomitant]
     Active Substance: PANTOPRAZOLE SODIUM
  14. ZOLPIDEM [Concomitant]
     Active Substance: ZOLPIDEM\ZOLPIDEM TARTRATE
  15. GABAPENTIN. [Concomitant]
     Active Substance: GABAPENTIN
  16. AMLODIPINE [Concomitant]
     Active Substance: AMLODIPINE BESYLATE
  17. DIFLUCAN [Concomitant]
     Active Substance: FLUCONAZOLE
  18. LENVIMA [Suspect]
     Active Substance: LENVATINIB
     Indication: THYROID CANCER
     Route: 048
     Dates: start: 20160112, end: 201606
  19. TEMAZEPAM. [Concomitant]
     Active Substance: TEMAZEPAM
  20. DEXAMETHASONE. [Concomitant]
     Active Substance: DEXAMETHASONE

REACTIONS (20)
  - Arthralgia [Unknown]
  - Platelet count decreased [Unknown]
  - Decreased appetite [Unknown]
  - Dysphonia [Unknown]
  - Dehydration [Unknown]
  - Fatigue [Unknown]
  - Vomiting [Unknown]
  - Neoplasm malignant [Unknown]
  - Glossodynia [Unknown]
  - Dry mouth [Unknown]
  - Nausea [Unknown]
  - Diarrhoea [Unknown]
  - Musculoskeletal discomfort [Unknown]
  - Weight decreased [Unknown]
  - Dyspnoea [Unknown]
  - Malignant neoplasm progression [Unknown]
  - Oral pain [Unknown]
  - Blood pressure increased [Unknown]
  - Constipation [Unknown]
  - Tongue dry [Unknown]

NARRATIVE: CASE EVENT DATE: 2016
